FAERS Safety Report 17828619 (Version 1)
Quarter: 2020Q2

REPORT INFORMATION
  Report Type: Spontaneous
  Country: US (occurrence: US)
  Receive Date: 20200527
  Receipt Date: 20200527
  Transmission Date: 20200714
  Serious: Yes (Hospitalization, Disabling, Other)
  Sender: FDA-Public Use
  Company Number: US-SA-2020SA133657

PATIENT

DRUGS (1)
  1. ZANTAC 75 [Suspect]
     Active Substance: RANITIDINE HYDROCHLORIDE
     Dosage: UNK
     Dates: start: 1984, end: 2018

REACTIONS (8)
  - Emotional distress [Unknown]
  - Pain [Unknown]
  - Tension [Unknown]
  - Renal cancer [Unknown]
  - Exposure to toxic agent [Unknown]
  - Loss of personal independence in daily activities [Unknown]
  - Injury [Unknown]
  - Deformity [Unknown]
